FAERS Safety Report 23128490 (Version 3)
Quarter: 2023Q4

REPORT INFORMATION
  Report Type: Spontaneous
  Country: AR (occurrence: AR)
  Receive Date: 20231031
  Receipt Date: 20231124
  Transmission Date: 20240109
  Serious: Yes (Other)
  Sender: FDA-Public Use
  Company Number: AR-ORGANON-O2310ARG003279

PATIENT
  Sex: Female

DRUGS (1)
  1. ETONOGESTREL [Suspect]
     Active Substance: ETONOGESTREL
     Dosage: 1 IMPLANT
     Route: 059

REACTIONS (4)
  - Implant site necrosis [Unknown]
  - Implant site dermatitis [Unknown]
  - Implant site cellulitis [Unknown]
  - Implant site discolouration [Unknown]
